FAERS Safety Report 16816421 (Version 9)
Quarter: 2023Q4

REPORT INFORMATION
  Report Type: Report from Study
  Country: BR (occurrence: BR)
  Receive Date: 20190917
  Receipt Date: 20231208
  Transmission Date: 20240110
  Serious: Yes (Other)
  Sender: FDA-Public Use
  Company Number: BR-GLAXOSMITHKLINE-BR2019GSK074154

PATIENT

DRUGS (11)
  1. BELIMUMAB [Suspect]
     Active Substance: BELIMUMAB
     Indication: Systemic lupus erythematosus
     Dosage: 10 MG/KG, CYC
     Route: 042
     Dates: start: 20190128, end: 20200311
  2. BELIMUMAB [Suspect]
     Active Substance: BELIMUMAB
     Dosage: UNK, CYC
     Route: 042
     Dates: start: 20190128
  3. BELIMUMAB [Suspect]
     Active Substance: BELIMUMAB
     Dosage: CYC
     Route: 042
     Dates: start: 20200713
  4. BELIMUMAB [Suspect]
     Active Substance: BELIMUMAB
     Dosage: CYC
     Route: 042
     Dates: start: 20201001
  5. BELIMUMAB [Suspect]
     Active Substance: BELIMUMAB
     Dosage: CYC
     Route: 042
     Dates: start: 20201207
  6. BELIMUMAB [Suspect]
     Active Substance: BELIMUMAB
     Dosage: CYC
     Route: 042
     Dates: start: 20210121, end: 20210318
  7. BELIMUMAB [Suspect]
     Active Substance: BELIMUMAB
     Dosage: CYC
     Route: 042
     Dates: start: 20210913
  8. BELIMUMAB [Suspect]
     Active Substance: BELIMUMAB
     Dosage: CYC
     Route: 042
     Dates: start: 20211108
  9. BELIMUMAB [Suspect]
     Active Substance: BELIMUMAB
     Dosage: CYC
     Route: 042
     Dates: start: 20220308
  10. BELIMUMAB [Suspect]
     Active Substance: BELIMUMAB
     Dosage: CYC
     Route: 042
     Dates: start: 20220629
  11. BELIMUMAB [Suspect]
     Active Substance: BELIMUMAB
     Dosage: CYC
     Route: 042
     Dates: start: 20220804

REACTIONS (42)
  - Hepatic infection bacterial [Unknown]
  - Kidney infection [Recovered/Resolved]
  - Hypertension [Unknown]
  - Thyroid disorder [Unknown]
  - Hepatic steatosis [Unknown]
  - Osteoarthritis [Unknown]
  - Foot fracture [Unknown]
  - Metabolic surgery [Unknown]
  - Decreased immune responsiveness [Unknown]
  - Alopecia [Unknown]
  - Asthenia [Unknown]
  - Fibromyalgia [Unknown]
  - Weight decreased [Unknown]
  - Urinary tract infection [Unknown]
  - Oropharyngeal pain [Unknown]
  - Cough [Unknown]
  - Pyrexia [Unknown]
  - Coronavirus infection [Unknown]
  - COVID-19 [Recovered/Resolved]
  - Pharyngitis [Recovered/Resolved]
  - Pulmonary pain [Unknown]
  - Haemangioma of liver [Unknown]
  - Urinary tract infection [Not Recovered/Not Resolved]
  - Influenza [Not Recovered/Not Resolved]
  - Pain [Unknown]
  - Skin disorder [Unknown]
  - Urinary tract infection [Recovered/Resolved]
  - COVID-19 [Recovered/Resolved]
  - Therapy interrupted [Unknown]
  - Myalgia [Unknown]
  - Headache [Unknown]
  - Somnolence [Unknown]
  - Social problem [Unknown]
  - Product availability issue [Unknown]
  - Product dose omission issue [Unknown]
  - Inappropriate schedule of product administration [Unknown]
  - Inappropriate schedule of product administration [Not Recovered/Not Resolved]
  - Inappropriate schedule of product administration [Recovered/Resolved]
  - Inappropriate schedule of product administration [Recovered/Resolved]
  - Weight increased [Not Recovered/Not Resolved]
  - Arthralgia [Not Recovered/Not Resolved]
  - Fall [Unknown]

NARRATIVE: CASE EVENT DATE: 20190429
